FAERS Safety Report 5537261-1 (Version None)
Quarter: 2007Q4

REPORT INFORMATION
  Report Type: 
  Country: None (occurrence: None)
  Receive Date: 20071207
  Receipt Date: 20071127
  Transmission Date: 20080405
  Serious: Yes (Death)
  Sender: FDA-Public Use
  Company Number: GB-GENENTECH-252259

PATIENT
  Age: 25 Year
  Sex: Male

DRUGS (5)
  1. RITUXAN [Suspect]
     Indication: LYMPHOPROLIFERATIVE DISORDER
  2. ALEMTUZUMAB [Suspect]
     Indication: DRUG USE FOR UNKNOWN INDICATION
     Dosage: 20 MG, UNK
  3. CYCLOSPORINE [Suspect]
     Indication: DRUG USE FOR UNKNOWN INDICATION
  4. FLUDARABINE PHOSPHATE [Suspect]
     Indication: DRUG USE FOR UNKNOWN INDICATION
     Dosage: 30 MG/M2, UNK
  5. MELPHALAN [Suspect]
     Indication: DRUG USE FOR UNKNOWN INDICATION
     Dosage: 140 MIU/M2, UNK

REACTIONS (2)
  - CRYPTOGENIC ORGANISING PNEUMONIA [None]
  - OBLITERATIVE BRONCHIOLITIS [None]
